FAERS Safety Report 14525277 (Version 1)
Quarter: 2018Q1

REPORT INFORMATION
  Report Type: Spontaneous
  Country: US (occurrence: US)
  Receive Date: 20180210
  Receipt Date: 20180210
  Transmission Date: 20180509
  Serious: Yes (Other)
  Sender: FDA-Public Use
  Company Number: None

PATIENT
  Age: 60 Year
  Sex: Male
  Weight: 93.15 kg

DRUGS (2)
  1. PREPOPIK [Suspect]
     Active Substance: ANHYDROUS CITRIC ACID\MAGNESIUM OXIDE\SODIUM PICOSULFATE
     Indication: COLONOSCOPY
     Dosage: ?          OTHER STRENGTH:MY-G-G;QUANTITY:1 ONE APPLICATION;?
     Route: 048
     Dates: start: 20180206, end: 20180206
  2. OMEPRAZOLE. [Concomitant]
     Active Substance: OMEPRAZOLE

REACTIONS (8)
  - Dizziness [None]
  - Disorientation [None]
  - Dyspnoea [None]
  - Loss of consciousness [None]
  - Hyperhidrosis [None]
  - Anal incontinence [None]
  - Urinary incontinence [None]
  - Fall [None]

NARRATIVE: CASE EVENT DATE: 20180206
